FAERS Safety Report 9981123 (Version 2)
Quarter: 2014Q2

REPORT INFORMATION
  Report Type: Spontaneous
  Country: JP (occurrence: JP)
  Receive Date: 20140307
  Receipt Date: 20140611
  Transmission Date: 20141212
  Serious: Yes (Hospitalization)
  Sender: FDA-Public Use
  Company Number: JP-TAKEDA-2014TEU001929

PATIENT
  Age: 85 Year
  Sex: Female

DRUGS (7)
  1. TACHOSIL [Suspect]
     Indication: PROPHYLAXIS
     Dosage: 1 SHEET OF REGULAR SIZE/1DAY
     Route: 003
     Dates: start: 20130111
  2. THYRADIN S [Concomitant]
     Indication: HYPOTHYROIDISM
     Dosage: 25 ?G, QD
  3. PURSENNID                          /00142207/ [Concomitant]
     Indication: CONSTIPATION
     Dosage: 12 MG, PRN
  4. LOXONIN [Concomitant]
     Indication: PAIN
     Dosage: 60 MG, TID
     Dates: start: 20130112
  5. MUCODYNE [Concomitant]
     Indication: PRODUCTIVE COUGH
     Dosage: 500 MG, TID
     Dates: start: 20130112, end: 20130204
  6. LIPITOR [Concomitant]
     Indication: HYPERLIPIDAEMIA
     Dosage: 10 MG, QD
  7. BERIPLAST P COMBI-SET TISSUE ADHESION [Concomitant]
     Dosage: 3 ML, QD
     Dates: start: 20130111, end: 20130111

REACTIONS (2)
  - Postoperative wound infection [Recovered/Resolved]
  - Hypoalbuminaemia [Not Recovered/Not Resolved]
